FAERS Safety Report 5455759-1 (Version None)
Quarter: 2007Q3

REPORT INFORMATION
  Report Type: 
  Country: None (occurrence: None)
  Receive Date: 20070918
  Receipt Date: 20070330
  Transmission Date: 20080115
  Serious: Yes (Hospitalization)
  Sender: FDA-Public Use
  Company Number: US-ASTRAZENECA-2006UW22649

PATIENT
  Age: 70 Year
  Sex: Female
  Weight: 81.8 kg

DRUGS (1)
  1. SEROQUEL [Suspect]
     Indication: DEPRESSION
     Dosage: 300 MG UNTIL 2003, DOSE FROM 2003 UNKNOWN
     Route: 048

REACTIONS (2)
  - CONVULSION [None]
  - TYPE 2 DIABETES MELLITUS [None]
